FAERS Safety Report 9887202 (Version 1)
Quarter: 2014Q1

REPORT INFORMATION
  Report Type: Spontaneous
  Country: US (occurrence: US)
  Receive Date: 20140211
  Receipt Date: 20140211
  Transmission Date: 20141002
  Serious: No
  Sender: FDA-Public Use
  Company Number: US-BIOGENIDEC-2014BI009789

PATIENT
  Sex: Female

DRUGS (12)
  1. TECFIDERA [Suspect]
     Indication: MULTIPLE SCLEROSIS
     Dates: start: 20131205
  2. JANUVIA [Concomitant]
  3. TOVIAZ ER [Concomitant]
  4. LIPITOR [Concomitant]
  5. BACLOFEN [Concomitant]
  6. FOLIC ACID [Concomitant]
  7. VITAMIN D-3 [Concomitant]
  8. ZETIA [Concomitant]
  9. ALEVE [Concomitant]
  10. CO Q-10 [Concomitant]
  11. CVS SENNA [Concomitant]
  12. ASPIR EC [Concomitant]

REACTIONS (1)
  - Restless legs syndrome [Recovered/Resolved]
